FAERS Safety Report 5724446-4 (Version None)
Quarter: 2008Q2

REPORT INFORMATION
  Report Type: 
  Country: None (occurrence: None)
  Receive Date: 20080428
  Receipt Date: 20080416
  Transmission Date: 20081010
  Serious: Yes (Other)
  Sender: FDA-Public Use
  Company Number: CHNY2007GB02733

PATIENT
  Age: 28 Year
  Sex: Female
  Weight: 52 kg

DRUGS (4)
  1. OTRIVIN [Suspect]
     Indication: NASAL CONGESTION
     Dosage: 1 APPLICATION TO EACH NOSTRIL TWICE A DAY, NASAL
     Route: 045
  2. ACETAMINOPHEN [Concomitant]
  3. IPRATROPIUM BROMIDE [Concomitant]
  4. MOMETASONE FUROATE [Concomitant]

REACTIONS (4)
  - ABORTION SPONTANEOUS [None]
  - DRUG EXPOSURE DURING PREGNANCY [None]
  - INTENTIONAL DRUG MISUSE [None]
  - NASAL CONGESTION [None]
